FAERS Safety Report 5082960-1 (Version None)
Quarter: 2006Q3

REPORT INFORMATION
  Report Type: 
  Country: None (occurrence: None)
  Receive Date: 20060814
  Receipt Date: 20060807
  Transmission Date: 20061208
  Serious: Yes (Death)
  Sender: FDA-Public Use
  Company Number: 227391

PATIENT
  Age: 76 Year
  Sex: Male

DRUGS (6)
  1. GRTPA(ALTEPLASE) PWDR + SOLVENT,INFUSION SOLN [Suspect]
     Indication: CEREBRAL ARTERY EMBOLISM
     Dosage: 33.1 ML, SINGLE, INTRAVENOUS
     Route: 042
     Dates: start: 20060702, end: 20060703
  2. NICARDIPINE HYDROCHLORIDE [Concomitant]
  3. FAMOTIDINE [Concomitant]
  4. DIAZEPAM [Concomitant]
  5. RADICUT (EDARAVONE) [Concomitant]
  6. GLYCEOL (GLYCERIN) [Concomitant]

REACTIONS (9)
  - BLOOD PRESSURE INCREASED [None]
  - BRAIN HERNIATION [None]
  - BRAIN OEDEMA [None]
  - DEPRESSED LEVEL OF CONSCIOUSNESS [None]
  - MYDRIASIS [None]
  - PUPILLARY LIGHT REFLEX TESTS ABNORMAL [None]
  - PUPILS UNEQUAL [None]
  - RESPIRATORY FAILURE [None]
  - URINE OUTPUT INCREASED [None]
